FAERS Safety Report 5264750-X (Version None)
Quarter: 2007Q1

REPORT INFORMATION
  Report Type: 
  Country: None (occurrence: None)
  Receive Date: 20070314
  Receipt Date: 20070308
  Transmission Date: 20070707
  Serious: Yes (Hospitalization)
  Sender: FDA-Public Use
  Company Number: JP-BRISTOL-MYERS SQUIBB COMPANY-13704523

PATIENT
  Age: 74 Year
  Sex: Male

DRUGS (16)
  1. PARAPLATIN [Suspect]
     Indication: LUNG NEOPLASM MALIGNANT
     Route: 041
     Dates: start: 20070206, end: 20070206
  2. NAVELBINE [Suspect]
     Indication: LUNG NEOPLASM MALIGNANT
     Route: 041
     Dates: start: 20070206, end: 20070206
  3. ZANTAC [Concomitant]
     Route: 042
     Dates: start: 20070111, end: 20070206
  4. DECADRON [Concomitant]
     Route: 042
     Dates: start: 20070111, end: 20070206
  5. SEROTONE [Concomitant]
     Route: 042
     Dates: start: 20070111, end: 20070206
  6. BASEN [Concomitant]
     Route: 048
     Dates: start: 20070109
  7. EUGLUCAN [Concomitant]
     Route: 048
     Dates: start: 20070109
  8. ADALAT [Concomitant]
     Route: 048
     Dates: start: 20070109
  9. MAGNESIUM OXIDE [Concomitant]
     Route: 048
     Dates: start: 20070109
  10. ACTOS [Concomitant]
     Route: 048
     Dates: start: 20070109
  11. TAKEPRON [Concomitant]
     Route: 048
     Dates: start: 20070109
  12. MUCOSOLVAN [Concomitant]
     Route: 048
     Dates: start: 20070109
  13. UNIPHYL [Concomitant]
     Route: 048
     Dates: start: 20070109
  14. DEPAS [Concomitant]
     Route: 048
     Dates: start: 20070109
  15. LENDORMIN [Concomitant]
     Route: 048
     Dates: start: 20070109
  16. HOKUNALIN [Concomitant]
     Route: 062
     Dates: start: 20070109

REACTIONS (2)
  - CHOLECYSTITIS [None]
  - LEUKOPENIA [None]
